FAERS Safety Report 25904303 (Version 1)
Quarter: 2025Q4

REPORT INFORMATION
  Report Type: Spontaneous
  Country: US (occurrence: US)
  Receive Date: 20251010
  Receipt Date: 20251010
  Transmission Date: 20260118
  Serious: No
  Sender: CHATTEM
  Company Number: US-OPELLA-2025OHG029514

PATIENT
  Age: 31 Year
  Sex: Female

DRUGS (4)
  1. FEXOFENADINE [Suspect]
     Active Substance: FEXOFENADINE HYDROCHLORIDE
     Indication: Urticaria
  2. FEXOFENADINE [Suspect]
     Active Substance: FEXOFENADINE HYDROCHLORIDE
     Indication: Pruritus
  3. MONTELUKAST [Concomitant]
     Active Substance: MONTELUKAST
     Indication: Urticaria
  4. MONTELUKAST [Concomitant]
     Active Substance: MONTELUKAST
     Indication: Pruritus

REACTIONS (2)
  - Off label use [Unknown]
  - No adverse event [Unknown]
